FAERS Safety Report 4544722-0 (Version None)
Quarter: 2005Q1

REPORT INFORMATION
  Report Type: 
  Country: None (occurrence: None)
  Receive Date: 20050103
  Receipt Date: 20050103
  Transmission Date: 20050727
  Serious: Yes (Hospitalization)
  Sender: FDA-Public Use
  Company Number: None

PATIENT
  Age: 56 Year
  Sex: Male
  Weight: 80.2867 kg

DRUGS (7)
  1. DEPAKOTE [Suspect]
     Indication: BIPOLAR DISORDER
     Dosage: 2500MG  DAILY ORAL
     Route: 048
     Dates: start: 20040101, end: 20041212
  2. COGENTIN [Concomitant]
  3. NORVASC [Concomitant]
  4. ATENOLOL [Concomitant]
  5. KAYEXALATE [Concomitant]
  6. PREVACID [Concomitant]
  7. ZYPREXA ZYDIS [Concomitant]

REACTIONS (1)
  - PANCREATITIS [None]
